FAERS Safety Report 9046155 (Version 1)
Quarter: 2013Q1

REPORT INFORMATION
  Report Type: Spontaneous
  Country: US (occurrence: US)
  Receive Date: 20130201
  Receipt Date: 20130201
  Transmission Date: 20140127
  Serious: Yes (Other)
  Sender: FDA-Public Use
  Company Number: PHEH2013US001165

PATIENT
  Sex: Female

DRUGS (2)
  1. AFINITOR [Suspect]
     Indication: BREAST CANCER
     Dosage: 5 MG, QOD
     Route: 048
     Dates: start: 201208
  2. AROMASIN [Concomitant]
     Indication: BREAST CANCER METASTATIC

REACTIONS (4)
  - Blood calcium increased [Unknown]
  - Depression [Unknown]
  - Concomitant disease aggravated [Unknown]
  - Pain [Unknown]
